FAERS Safety Report 9989724 (Version 1)
Quarter: 2014Q1

REPORT INFORMATION
  Report Type: Report from Study
  Country: US (occurrence: US)
  Receive Date: 20140310
  Receipt Date: 20140310
  Transmission Date: 20141002
  Serious: No
  Sender: FDA-Public Use
  Company Number: US-ABBVIE-13P-163-1132170-00

PATIENT
  Age: 68 Year
  Sex: Female

DRUGS (7)
  1. HUMIRA [Suspect]
     Indication: CROHN^S DISEASE
     Dates: start: 20130709
  2. LIALDA [Concomitant]
     Indication: CROHN^S DISEASE
     Dosage: 4 TABLETS DAILY
  3. BUDESONIDE [Concomitant]
     Indication: CROHN^S DISEASE
     Dosage: 3MG DAILY
  4. VITAMIN B12 [Concomitant]
     Indication: VITAMIN SUPPLEMENTATION
     Dosage: 1000MCG DAILY
  5. FISH OIL [Concomitant]
     Indication: DRY EYE
  6. CALCIUM [Concomitant]
     Indication: OSTEOPENIA
     Dosage: 600MG DAILY
  7. MULTIVITAMIN [Concomitant]
     Indication: VITAMIN SUPPLEMENTATION
     Dosage: DAILY

REACTIONS (2)
  - Injection site erythema [Not Recovered/Not Resolved]
  - Injection site pruritus [Not Recovered/Not Resolved]
